FAERS Safety Report 21578609 (Version 1)
Quarter: 2022Q4

REPORT INFORMATION
  Report Type: Spontaneous
  Country: IT (occurrence: IT)
  Receive Date: 20221110
  Receipt Date: 20221110
  Transmission Date: 20230112
  Serious: Yes (Other)
  Sender: FDA-Public Use
  Company Number: None

PATIENT
  Age: 53 Year
  Sex: Female
  Weight: 58 kg

DRUGS (6)
  1. OXALIPLATIN [Suspect]
     Active Substance: OXALIPLATIN
     Indication: Colon cancer
     Dosage: THERAPY DURATION : 393 DAYS,
     Route: 065
     Dates: start: 20210914, end: 20221012
  2. FLUOROURACIL [Suspect]
     Active Substance: FLUOROURACIL
     Indication: Colon cancer
     Dosage: THERAPY DURATION : 393 DAYS
     Route: 065
     Dates: start: 20210914, end: 20221012
  3. BEVACIZUMAB [Suspect]
     Active Substance: BEVACIZUMAB
     Indication: Colon cancer
     Dosage: FREQUENCY TIME : 14 DAYS,  THERAPY DURATION : 393 DAYS,
     Route: 065
     Dates: start: 20210914, end: 20221012
  4. LEVOLEUCOVORIN CALCIUM [Concomitant]
     Active Substance: LEVOLEUCOVORIN CALCIUM
     Indication: Therapeutic product effect increased
     Dosage: UNIT DOSE :157MG, THERAPY DURATION : 120 MINS
     Dates: start: 20210914, end: 20221012
  5. DEXAMETHASONE [Concomitant]
     Active Substance: DEXAMETHASONE
     Indication: Hypercalcaemia of malignancy
     Dosage: 8 MG, UNIT DOSE : 8 MG,THERAPY DURATION : 15 MINS
     Dates: start: 20210914, end: 20221012
  6. ONDANSETRON [Concomitant]
     Active Substance: ONDANSETRON
     Indication: Nausea
     Dosage: 8 MG, UNIT DOSE : 8 MG,THERAPY DURATION : 15 MINS
     Dates: start: 20210914, end: 20221012

REACTIONS (7)
  - Myelosuppression [Recovering/Resolving]
  - Asthenia [Recovering/Resolving]
  - Paraesthesia [Recovering/Resolving]
  - Insomnia [Recovering/Resolving]
  - Nausea [Recovering/Resolving]
  - Diarrhoea [Recovering/Resolving]
  - Mucosal inflammation [Recovering/Resolving]

NARRATIVE: CASE EVENT DATE: 20210901
